FAERS Safety Report 10949318 (Version 3)
Quarter: 2015Q3

REPORT INFORMATION
  Report Type: Report from Study
  Country: JP (occurrence: JP)
  Receive Date: 20150324
  Receipt Date: 20150812
  Transmission Date: 20151125
  Serious: Yes (Death, Hospitalization, Disabling, Other)
  Sender: FDA-Public Use
  Company Number: JP-INCYTE CORPORATION-2015IN001049

PATIENT
  Age: 49 Year
  Sex: Female
  Weight: 80 kg

DRUGS (13)
  1. AMLODIPINE [Concomitant]
     Active Substance: AMLODIPINE BESYLATE
     Dosage: 10 MG
     Route: 048
     Dates: start: 20150122
  2. HYDREA [Concomitant]
     Active Substance: HYDROXYUREA
     Indication: MYELOFIBROSIS
     Dosage: 1500 MG, UNK
     Route: 048
     Dates: start: 20150106, end: 20150107
  3. JAKAFI [Suspect]
     Active Substance: RUXOLITINIB
     Indication: MYELOFIBROSIS
     Dosage: 5 MG, BID
     Route: 048
     Dates: start: 20141208, end: 20150105
  4. IRRADIATED LEUKOCYTE POOR RED CELLS [Concomitant]
     Indication: MYELOFIBROSIS
     Dosage: 2 IU, UNK
     Route: 065
  5. MEROPENEM. [Suspect]
     Active Substance: MEROPENEM
     Indication: PRODUCT USED FOR UNKNOWN INDICATION
     Dosage: 0.5 G, UNK
     Route: 065
     Dates: start: 20150115, end: 20150116
  6. SULFAMETHOXAZOLE AND TRIMETHOPRIM [Concomitant]
     Active Substance: SULFAMETHOXAZOLE\TRIMETHOPRIM
     Dosage: 0.5 DF, UNK
     Route: 048
     Dates: start: 20150109
  7. NEUTROGIN [Concomitant]
     Active Substance: LENOGRASTIM
     Indication: MYELOFIBROSIS
     Dosage: 250 UG, UNK
     Route: 065
     Dates: start: 20150110, end: 20150123
  8. IRRADIATED PLATELET CONCENTRATE, LEUKOCYTES R [Concomitant]
     Indication: MYELOFIBROSIS
     Dosage: 10 IU, UNK
     Route: 065
     Dates: start: 20141229
  9. SULFAMETHOXAZOLE AND TRIMETHOPRIM [Concomitant]
     Active Substance: SULFAMETHOXAZOLE\TRIMETHOPRIM
     Indication: INFECTION PROPHYLAXIS
     Dosage: 1 DF, UNK
     Route: 048
     Dates: start: 20141212, end: 20150107
  10. DILTIAZEM HYDROCHLORIDE. [Concomitant]
     Active Substance: DILTIAZEM HYDROCHLORIDE
     Dosage: 100 MG, UNK
     Route: 065
     Dates: start: 20150128, end: 20150203
  11. AMLODIPINE [Concomitant]
     Active Substance: AMLODIPINE BESYLATE
     Indication: MYELOFIBROSIS
     Dosage: 5 MG
     Route: 048
     Dates: start: 20150119, end: 20150121
  12. IRRADIATED PLATELET CONCENTRATE, LEUKOCYTES R [Concomitant]
     Dosage: 15 IU, UNK
     Route: 065
     Dates: start: 20150102, end: 20150102
  13. DILTIAZEM HYDROCHLORIDE. [Concomitant]
     Active Substance: DILTIAZEM HYDROCHLORIDE
     Indication: MYELOFIBROSIS
     Dosage: 450 MG, UNK
     Route: 065
     Dates: start: 20150117, end: 20150127

REACTIONS (6)
  - Epilepsy [Recovering/Resolving]
  - Lung disorder [Recovering/Resolving]
  - Myelofibrosis [Unknown]
  - Bone marrow failure [Unknown]
  - Acute kidney injury [Not Recovered/Not Resolved]
  - Death [Fatal]

NARRATIVE: CASE EVENT DATE: 20150105
